FAERS Safety Report 14737761 (Version 1)
Quarter: 2018Q2

REPORT INFORMATION
  Report Type: Spontaneous
  Country: DE (occurrence: DE)
  Receive Date: 20180409
  Receipt Date: 20180409
  Transmission Date: 20180711
  Serious: Yes (Death, Hospitalization, Other)
  Sender: FDA-Public Use
  Company Number: DE-PFM-2018-04399

PATIENT

DRUGS (3)
  1. NIVOLUMAB [Suspect]
     Active Substance: NIVOLUMAB
     Indication: SQUAMOUS CELL CARCINOMA OF HEAD AND NECK
     Dosage: 223 MG, Q2WK
     Route: 065
     Dates: start: 20160318, end: 20161027
  2. RITALIN [Concomitant]
     Active Substance: METHYLPHENIDATE HYDROCHLORIDE
     Indication: PRODUCT USED FOR UNKNOWN INDICATION
     Route: 065
  3. VINORELBINE TARTRATE. [Suspect]
     Active Substance: VINORELBINE TARTRATE
     Indication: SQUAMOUS CELL CARCINOMA OF HEAD AND NECK
     Dosage: 59 MG, EVERY 28 DAYS
     Route: 065
     Dates: start: 20161031

REACTIONS (7)
  - Pneumonia [Fatal]
  - Product use in unapproved indication [Unknown]
  - General physical health deterioration [Fatal]
  - Depressed mood [Fatal]
  - Off label use [Unknown]
  - Aplasia [Fatal]
  - Dyspnoea [Fatal]
